FAERS Safety Report 8382543-1 (Version None)
Quarter: 2012Q2

REPORT INFORMATION
  Report Type: 
  Country: None (occurrence: None)
  Receive Date: 20120524
  Receipt Date: 20120522
  Transmission Date: 20120825
  Serious: Yes (Death, Other)
  Sender: FDA-Public Use
  Company Number: PHEH2006US03646

PATIENT
  Sex: Female
  Weight: 58.957 kg

DRUGS (14)
  1. TRIAMTERENE [Concomitant]
     Dosage: UNK UKN, QD
  2. VITAMIN E [Concomitant]
     Dosage: 400 IU, QD
  3. DYAZIDE [Concomitant]
  4. ZOMETA [Suspect]
     Indication: METASTASES TO BONE
     Dosage: UNK UKN, MONTHLY
     Route: 042
     Dates: end: 20051001
  5. POTASSIUM CHLORIDE [Concomitant]
     Dosage: 10 MEQ, BID
  6. VITAMIN B-12 [Concomitant]
     Dosage: 500 MG, QD
  7. TYLENOL W/ CODEINE NO. 3 [Concomitant]
  8. ANTINEOPLASTIC AGENTS [Concomitant]
     Dosage: UNK UKN, UNK
     Dates: start: 20060301
  9. FEMARA [Concomitant]
     Dosage: 2.5 MG, UNK
  10. FASLODEX [Concomitant]
     Dosage: UNK UKN, QMO
  11. RADIATION [Concomitant]
     Dosage: UNK UKN, UNK
     Dates: end: 20041001
  12. AREDIA [Suspect]
     Dosage: UNK UKN, QMO
  13. DEXAMETHASONE [Concomitant]
  14. ANTINEOPLASTIC AGENTS [Concomitant]
     Dosage: UNK UKN, UNK
     Dates: end: 20050201

REACTIONS (28)
  - ORAL PAIN [None]
  - BACTERIAL INFECTION [None]
  - CHEST PAIN [None]
  - GOITRE [None]
  - HYPERMETABOLISM [None]
  - NEUROPATHY PERIPHERAL [None]
  - TONGUE DISORDER [None]
  - ANXIETY [None]
  - CLAVICLE FRACTURE [None]
  - INTERVERTEBRAL DISC DEGENERATION [None]
  - BACK PAIN [None]
  - ABDOMINAL PAIN [None]
  - NEOPLASM PROGRESSION [None]
  - BONE DISORDER [None]
  - NEOPLASM MALIGNANT [None]
  - PRIMARY SEQUESTRUM [None]
  - COUGH [None]
  - FOOT FRACTURE [None]
  - ROAD TRAFFIC ACCIDENT [None]
  - HYPOTHYROIDISM [None]
  - HEPATIC LESION [None]
  - METASTASES TO LIVER [None]
  - SWOLLEN TONGUE [None]
  - PAIN [None]
  - ATELECTASIS [None]
  - OSTEONECROSIS OF JAW [None]
  - DECREASED INTEREST [None]
  - HYPERCALCAEMIA [None]
